FAERS Safety Report 6271086-7 (Version None)
Quarter: 2009Q3

REPORT INFORMATION
  Report Type: 
  Country: None (occurrence: None)
  Receive Date: 20090716
  Receipt Date: 20080915
  Transmission Date: 20100115
  Serious: No
  Sender: FDA-Public Use
  Company Number: US-TYCO HEALTHCARE/MALLINCKRODT-T200801507

PATIENT

DRUGS (8)
  1. OXYCODONE HCL AND ACETAMINOPHEN [Suspect]
     Indication: FIBROMYALGIA
     Dosage: Q6 HRS, PRN
     Route: 048
     Dates: start: 20080827
  2. OXYCODONE HCL AND ACETAMINOPHEN [Suspect]
     Indication: PAIN
  3. LORAZEPAM [Concomitant]
     Indication: ANXIETY DISORDER
     Dosage: 2 MG, UNK
     Route: 048
  4. ZOLPIDEM [Concomitant]
     Indication: SLEEP DISORDER
     Dosage: 10 MG, UNK
     Route: 048
  5. DOXEPIN HCL [Concomitant]
     Dosage: 75 MG, UNK
     Route: 048
  6. PANTOPRAZOLE SODIUM [Concomitant]
     Indication: GASTROOESOPHAGEAL REFLUX DISEASE
     Dosage: 40 MG, UNK
     Route: 048
  7. CYCLOBENZAPRINE [Concomitant]
     Indication: MUSCLE RELAXANT THERAPY
     Dosage: 10 MG, UNK
     Route: 048
  8. BUPROPION HCL [Concomitant]
     Indication: ANTIDEPRESSANT THERAPY
     Dosage: 150 MG, UNK
     Route: 048

REACTIONS (2)
  - DRUG SCREEN NEGATIVE [None]
  - WITHDRAWAL SYNDROME [None]
